FAERS Safety Report 7345649-1 (Version None)
Quarter: 2011Q1

REPORT INFORMATION
  Report Type: 
  Country: None (occurrence: None)
  Receive Date: 20110310
  Receipt Date: 20110304
  Transmission Date: 20110831
  Serious: No
  Sender: FDA-Public Use
  Company Number: B0652365A

PATIENT
  Sex: Female

DRUGS (9)
  1. CLAMOXYL [Suspect]
     Dosage: 1G PER DAY
     Route: 030
     Dates: start: 20100505, end: 20100506
  2. CLAMOXYL [Concomitant]
     Route: 065
     Dates: start: 20100507, end: 20100512
  3. TEGRETOL [Concomitant]
     Dosage: 2TAB PER DAY
     Route: 065
  4. DOMPERIDONE [Concomitant]
     Route: 065
  5. COLECALCIFEROL + CALCIUM CARBONATE [Concomitant]
     Route: 065
  6. PHENYTOIN [Concomitant]
     Dosage: 3TAB PER DAY
     Route: 065
  7. RISPERDAL [Concomitant]
     Dosage: 1MG PER DAY
     Route: 065
  8. DUPHALAC [Concomitant]
     Route: 065
  9. NITRODERM [Concomitant]
     Route: 065

REACTIONS (4)
  - ERYTHEMA [None]
  - REACTION TO DRUG EXCIPIENTS [None]
  - PRURITUS [None]
  - HYPERSENSITIVITY [None]
